FAERS Safety Report 16556514 (Version 1)
Quarter: 2019Q3

REPORT INFORMATION
  Report Type: Spontaneous
  Country: US (occurrence: US)
  Receive Date: 20190710
  Receipt Date: 20190710
  Transmission Date: 20191004
  Serious: No
  Sender: FDA-Public Use
  Company Number: US-CELGENEUS-USA-20190701019

PATIENT
  Sex: Male

DRUGS (1)
  1. REVLIMID [Suspect]
     Active Substance: LENALIDOMIDE
     Indication: PLASMA CELL MYELOMA
     Dosage: 5 MILLIGRAM
     Route: 048
     Dates: start: 201705

REACTIONS (6)
  - Fatigue [Unknown]
  - Pruritus [Unknown]
  - Hypoaesthesia [Unknown]
  - Food allergy [Unknown]
  - Blister [Unknown]
  - Arthralgia [Unknown]

NARRATIVE: CASE EVENT DATE: 2017
